FAERS Safety Report 16095724 (Version 1)
Quarter: 2019Q2

REPORT INFORMATION
  Report Type: Spontaneous
  Country: US (occurrence: US)
  Receive Date: 20190320
  Receipt Date: 20190320
  Transmission Date: 20190711
  Serious: Yes (Other)
  Sender: FDA-Public Use
  Company Number: None

PATIENT
  Age: 72 Year
  Sex: Female
  Weight: 59.85 kg

DRUGS (7)
  1. PROAIR HFA [Concomitant]
     Active Substance: ALBUTEROL SULFATE
  2. REPATHA [Suspect]
     Active Substance: EVOLOCUMAB
     Indication: BLOOD CHOLESTEROL INCREASED
     Dosage: ?          OTHER STRENGTH:NO IDEA;QUANTITY:1 INJECTION(S);OTHER FREQUENCY:2 X A MONTH;?
     Route: 058
     Dates: start: 20181227, end: 20190129
  3. MELOXICAM. [Concomitant]
     Active Substance: MELOXICAM
  4. MULTIPLE [Concomitant]
  5. COQ10 [Concomitant]
     Active Substance: UBIDECARENONE
  6. SOY [Concomitant]
     Active Substance: SOY EXTRACT
  7. PREMERIN [Concomitant]

REACTIONS (2)
  - Blister [None]
  - Pain [None]

NARRATIVE: CASE EVENT DATE: 20190128
